FAERS Safety Report 15073682 (Version 1)
Quarter: 2018Q2

REPORT INFORMATION
  Report Type: Report from Study
  Country: GB (occurrence: GB)
  Receive Date: 20180627
  Receipt Date: 20180627
  Transmission Date: 20180711
  Serious: Yes (Hospitalization)
  Sender: FDA-Public Use
  Company Number: GB-ROCHE-2141019

PATIENT
  Age: 71 Year
  Sex: Female

DRUGS (1)
  1. ATEZOLIZUMAB. [Suspect]
     Active Substance: ATEZOLIZUMAB
     Indication: NON-SMALL CELL LUNG CANCER
     Dosage: THE DATE OF FIRST DOSE PRIOT TO THE SAE- 07/JUN/2018? 1200 MG DOSE FOR 3 WEEKS OF 16 CYCLES
     Route: 042
     Dates: start: 20180607

REACTIONS (2)
  - Infection [Unknown]
  - Back pain [Unknown]

NARRATIVE: CASE EVENT DATE: 20180607
